FAERS Safety Report 5218772-5 (Version None)
Quarter: 2007Q1

REPORT INFORMATION
  Report Type: 
  Country: None (occurrence: None)
  Receive Date: 20070123
  Receipt Date: 20070112
  Transmission Date: 20070707
  Serious: Yes (Hospitalization, Other)
  Sender: FDA-Public Use
  Company Number: 230294K07USA

PATIENT
  Age: 57 Year
  Sex: Female

DRUGS (4)
  1. REBIF [Suspect]
     Indication: MULTIPLE SCLEROSIS
     Dosage: 44 MCG, 3 IN 1 WEEKS, SUBCUTANEOUS
     Route: 058
     Dates: start: 20061009
  2. ZOLOFT [Concomitant]
  3. PREMARIN [Concomitant]
  4. MOTRIN [Concomitant]

REACTIONS (4)
  - DIVERTICULITIS [None]
  - HEADACHE [None]
  - NO THERAPEUTIC RESPONSE [None]
  - SYSTEMIC LUPUS ERYTHEMATOSUS [None]
